FAERS Safety Report 5537251-9 (Version None)
Quarter: 2007Q4

REPORT INFORMATION
  Report Type: 
  Country: None (occurrence: None)
  Receive Date: 20071120
  Receipt Date: 20070821
  Transmission Date: 20080405
  Serious: No
  Sender: FDA-Public Use
  Company Number: WAES 0708USA04017

PATIENT
  Age: 67 Year
  Sex: Female

DRUGS (5)
  1. JANUVIA [Suspect]
     Indication: DIABETES MELLITUS
     Dosage: 100 MG DAILY PO, DAILY PO
     Route: 048
     Dates: start: 20070424
  2. BONIVA [Concomitant]
  3. EFFEXOR XR [Concomitant]
  4. GLUCOVANCE [Concomitant]
  5. VYTORIN [Concomitant]

REACTIONS (2)
  - BLOOD GLUCOSE FLUCTUATION [None]
  - WRONG TECHNIQUE IN DRUG USAGE PROCESS [None]
